FAERS Safety Report 20653182 (Version 1)
Quarter: 2022Q1

REPORT INFORMATION
  Report Type: Report from Study
  Country: FR (occurrence: None)
  Receive Date: 20220330
  Receipt Date: 20220330
  Transmission Date: 20220423
  Serious: Yes (Hospitalization)
  Sender: FDA-Public Use
  Company Number: 2022A126464

PATIENT
  Age: 70 Year
  Sex: Male

DRUGS (1)
  1. EVUSHELD [Suspect]
     Active Substance: CILGAVIMAB\TIXAGEVIMAB
     Indication: COVID-19
     Dosage: 150 MG TIXAGEVIMAB AND 150 MG CILGAVIMAB
     Route: 030

REACTIONS (2)
  - Neutralising antibodies negative [Unknown]
  - Drug ineffective [Unknown]
